FAERS Safety Report 9654422 (Version 1)
Quarter: 2013Q4

REPORT INFORMATION
  Report Type: Spontaneous
  Country: NL (occurrence: NL)
  Receive Date: 20131029
  Receipt Date: 20131029
  Transmission Date: 20140711
  Serious: Yes (Life-Threatening)
  Sender: FDA-Public Use
  Company Number: PHHY2013NL122194

PATIENT
  Sex: Male

DRUGS (2)
  1. VALSARTAN / DIOVAN / VAL489 / CGP 48933 [Suspect]
     Dosage: 1 DF (80MG), QD
     Dates: start: 19980101
  2. CLARITHROMYCIN [Interacting]
     Indication: DERMATITIS
     Dosage: 2 DF (250MG), QD
     Dates: start: 20131015

REACTIONS (2)
  - Syncope [Recovered/Resolved]
  - Drug interaction [Recovered/Resolved]
